FAERS Safety Report 6154986-8 (Version None)
Quarter: 2009Q2

REPORT INFORMATION
  Report Type: 
  Country: None (occurrence: None)
  Receive Date: 20090410
  Receipt Date: 20090331
  Transmission Date: 20091009
  Serious: Yes (Other)
  Sender: FDA-Public Use
  Company Number: 1000005630

PATIENT
  Age: 55 Year
  Sex: Female

DRUGS (6)
  1. CITALOPRAM HYDROBROMIDE [Suspect]
     Indication: BIPOLAR DISORDER
     Dosage: 40 MG (40 MG,1 IN 1 D),ORAL
     Route: 048
  2. CITALOPRAM HYDROBROMIDE [Suspect]
     Indication: BIPOLAR DISORDER
     Dosage: 20 MG (20 MG,1 IN 1 D),ORAL
     Route: 048
  3. RISPERIDONE [Concomitant]
  4. CARBAMAZEPINE [Concomitant]
  5. AMITRIPTLINE HYDROCHLORIDE TAB [Concomitant]
  6. AMOXICILLIN [Concomitant]

REACTIONS (2)
  - OESOPHAGEAL HAEMORRHAGE [None]
  - OESOPHAGEAL ULCER [None]
